FAERS Safety Report 25487568 (Version 1)
Quarter: 2025Q2

REPORT INFORMATION
  Report Type: Spontaneous
  Country: JP (occurrence: None)
  Receive Date: 20250627
  Receipt Date: 20250627
  Transmission Date: 20250716
  Serious: Yes (Other)
  Sender: Alvotech
  Company Number: JP-ALVOTECHPMS-2025-ALVOTECHPMS-004401

PATIENT
  Age: 56 Year
  Sex: Female

DRUGS (1)
  1. ADALIMUMAB [Suspect]
     Active Substance: ADALIMUMAB
     Indication: Crohn^s disease
     Route: 065

REACTIONS (1)
  - Pemphigoid [Recovered/Resolved]
